FAERS Safety Report 4555567-X (Version None)
Quarter: 2005Q1

REPORT INFORMATION
  Report Type: 
  Country: None (occurrence: None)
  Receive Date: 20041228
  Receipt Date: 20040329
  Transmission Date: 20050727
  Serious: Yes (Other)
  Sender: FDA-Public Use
  Company Number: PHEH2004US03632

PATIENT
  Age: 63 Year
  Sex: Female
  Weight: 62.6 kg

DRUGS (9)
  1. AREDIA [Suspect]
     Indication: HYPERCALCAEMIA OF MALIGNANCY
     Dosage: 90 MG, QMO, INTRAVENOUS
     Route: 042
     Dates: start: 20020124, end: 20020415
  2. ZOMETA [Suspect]
     Indication: HYPERCALCAEMIA OF MALIGNANCY
     Dosage: 4 MG, QMO, INTRAVENOUS
     Route: 042
     Dates: start: 20020501, end: 20021101
  3. ZOMETA [Suspect]
     Indication: HYPERCALCAEMIA OF MALIGNANCY
     Dosage: 4 MG, QMO, INTRAVENOUS
     Route: 042
     Dates: start: 20030101, end: 20030201
  4. ZOMETA [Suspect]
     Indication: HYPERCALCAEMIA OF MALIGNANCY
     Dosage: 4 MG, QMO, INTRAVENOUS
     Route: 042
     Dates: start: 20030401, end: 20030701
  5. TAXOTERE [Concomitant]
  6. DECADRON [Concomitant]
  7. KYTRIL [Concomitant]
  8. XELODA [Concomitant]
  9. FEMARA [Concomitant]

REACTIONS (3)
  - ASEPTIC NECROSIS BONE [None]
  - INFECTION [None]
  - PAIN [None]
